FAERS Safety Report 15602634 (Version 4)
Quarter: 2018Q4

REPORT INFORMATION
  Report Type: Spontaneous
  Country: US (occurrence: US)
  Receive Date: 20181109
  Receipt Date: 20181127
  Transmission Date: 20190205
  Serious: Yes (Other)
  Sender: FDA-Public Use
  Company Number: US-SA-2018SA307397

PATIENT
  Age: 42 Year
  Sex: Female

DRUGS (1)
  1. AUBAGIO [Suspect]
     Active Substance: TERIFLUNOMIDE
     Indication: MULTIPLE SCLEROSIS
     Dosage: 14 MG, QD
     Route: 048
     Dates: start: 20180724, end: 20180918

REACTIONS (11)
  - Multiple sclerosis relapse [Unknown]
  - Impaired healing [Recovered/Resolved]
  - Nausea [Unknown]
  - Fall [Unknown]
  - Paraesthesia [Unknown]
  - Depression [Unknown]
  - Vision blurred [Unknown]
  - Breast cancer [Unknown]
  - Dysphemia [Unknown]
  - Surgery [Recovered/Resolved]
  - Malaise [Unknown]

NARRATIVE: CASE EVENT DATE: 2018
